FAERS Safety Report 25358778 (Version 1)
Quarter: 2025Q2

REPORT INFORMATION
  Report Type: Report from Study
  Country: US (occurrence: US)
  Receive Date: 20250526
  Receipt Date: 20250526
  Transmission Date: 20250717
  Serious: Yes (Other)
  Sender: MALLINCKRODT
  Company Number: US-MALLINCKRODT-MNK202502477

PATIENT
  Age: 24 Year
  Sex: Female

DRUGS (3)
  1. CORTICOTROPIN [Suspect]
     Active Substance: CORTICOTROPIN
     Indication: Nephritic syndrome
  2. CORTICOTROPIN [Suspect]
     Active Substance: CORTICOTROPIN
     Indication: Nephritic syndrome
     Route: 058
  3. CORTICOTROPIN [Suspect]
     Active Substance: CORTICOTROPIN
     Indication: Nephrotic syndrome

REACTIONS (7)
  - Urinary tract infection [Unknown]
  - Urine protein/creatinine ratio increased [Unknown]
  - Protein albumin ratio increased [Unknown]
  - Stress [Unknown]
  - Fungal infection [Unknown]
  - Emotional disorder [Unknown]
  - Product dose omission issue [Unknown]
